FAERS Safety Report 12423744 (Version 1)
Quarter: 2016Q2

REPORT INFORMATION
  Report Type: Spontaneous
  Country: None (occurrence: None)
  Receive Date: 20160527
  Receipt Date: 20160527
  Transmission Date: 20160815
  Serious: Yes (Life-Threatening)
  Sender: FDA-Public Use
  Company Number: NL-ALSI-201500330

PATIENT
  Age: 73 Year
  Sex: Female

DRUGS (1)
  1. ZUURSTOF MEDICINAAL GASVORMIG AIR LIQUIDE, INHALATIEGAS 100% V/V OXYGEN [Suspect]
     Active Substance: OXYGEN
     Indication: OXYGEN SUPPLEMENTATION
     Dosage: 15 L LITRE(S) 15 L ONCE A MINUTE RESPIRATORY
     Route: 055

REACTIONS (3)
  - Dyspnoea [None]
  - Device issue [None]
  - Incorrect dose administered by device [None]

NARRATIVE: CASE EVENT DATE: 20151215
